FAERS Safety Report 23966607 (Version 1)
Quarter: 2024Q2

REPORT INFORMATION
  Report Type: Spontaneous
  Country: US (occurrence: US)
  Receive Date: 20240612
  Receipt Date: 20240612
  Transmission Date: 20240716
  Serious: No
  Sender: FDA-Public Use
  Company Number: US-TEVA-VS-3205304

PATIENT

DRUGS (1)
  1. AMIODARONE HYDROCHLORIDE [Suspect]
     Active Substance: AMIODARONE HYDROCHLORIDE
     Indication: Heart rate abnormal
     Route: 065

REACTIONS (3)
  - Fatigue [Unknown]
  - Dyspnoea [Unknown]
  - Cough [Unknown]
